FAERS Safety Report 13189673 (Version 3)
Quarter: 2017Q1

REPORT INFORMATION
  Report Type: Spontaneous
  Country: NL (occurrence: NL)
  Receive Date: 20170206
  Receipt Date: 20170322
  Transmission Date: 20170428
  Serious: Yes (Life-Threatening, Hospitalization, Other)
  Sender: FDA-Public Use
  Company Number: NL-PFIZER INC-2017048181

PATIENT
  Age: 75 Year
  Sex: Female
  Weight: 49 kg

DRUGS (9)
  1. PARACETAMOL [Concomitant]
     Active Substance: ACETAMINOPHEN
     Dosage: 1000 MG, 3X/DAY
     Route: 048
     Dates: start: 2014
  2. LYRICA [Suspect]
     Active Substance: PREGABALIN
     Indication: NEURALGIA
     Dosage: 75 MG, 1X/DAY
     Route: 048
     Dates: start: 20170103, end: 20170111
  3. PAROXETINE. [Concomitant]
     Active Substance: PAROXETINE
     Dosage: 15 MG, 1X/DAY
     Route: 048
     Dates: start: 2013
  4. OMEPRAZOL [Concomitant]
     Active Substance: OMEPRAZOLE
     Dosage: 40 MG, 1X/DAY
     Route: 048
     Dates: start: 2015
  5. THYRAX DUO [Concomitant]
     Active Substance: LEVOTHYROXINE SODIUM
     Dosage: 0.075 MG, 1X/DAY
     Route: 048
     Dates: start: 1996
  6. LISINOPRIL. [Concomitant]
     Active Substance: LISINOPRIL
     Dosage: 10 MG, 1X/DAY
     Route: 048
     Dates: start: 2005
  7. FENTANYL SANDOZ [Concomitant]
     Active Substance: FENTANYL
     Dosage: 1 DF, 1X/3 DAYS
     Route: 062
     Dates: start: 2015
  8. OXYNORM [Concomitant]
     Active Substance: OXYCODONE HYDROCHLORIDE
     Dosage: 5 MG, 2X/DAY
     Route: 048
     Dates: start: 2015
  9. NIFEDIPINE. [Concomitant]
     Active Substance: NIFEDIPINE
     Dosage: 30 MG, 1X/DAY
     Route: 048
     Dates: start: 1990

REACTIONS (10)
  - Platelet disorder [Unknown]
  - Musculoskeletal pain [Unknown]
  - Skin disorder [Unknown]
  - Contusion [Unknown]
  - Rib fracture [Unknown]
  - Pyrexia [Unknown]
  - Pneumonia [Unknown]
  - Haematoma [Recovering/Resolving]
  - Metastases to lung [Unknown]
  - Chest pain [Unknown]

NARRATIVE: CASE EVENT DATE: 20170106
